FAERS Safety Report 23502981 (Version 1)
Quarter: 2024Q1

REPORT INFORMATION
  Report Type: Spontaneous
  Country: US (occurrence: US)
  Receive Date: 20240208
  Receipt Date: 20240208
  Transmission Date: 20240410
  Serious: No
  Sender: FDA-Public Use
  Company Number: US-INTRA-CELLULAR THERAPIES, INC.-2023ICT01370

PATIENT
  Age: 3 Decade
  Sex: Female
  Weight: 111.11 kg

DRUGS (12)
  1. CAPLYTA [Suspect]
     Active Substance: LUMATEPERONE
     Indication: Bipolar II disorder
     Dosage: 42 MG, 1X/DAY
     Route: 048
     Dates: start: 20220915
  2. CAPLYTA [Suspect]
     Active Substance: LUMATEPERONE
     Indication: Bipolar disorder
  3. LEXAPRO [Concomitant]
     Active Substance: ESCITALOPRAM OXALATE
  4. LAMICTAL [Concomitant]
     Active Substance: LAMOTRIGINE
     Dosage: 100 MG, 2X/DAY
  5. ADVIL [Concomitant]
     Active Substance: IBUPROFEN
     Dosage: 200-400 MG, AS NEEDED
  6. ACETYLCYSTEINE [Concomitant]
     Active Substance: ACETYLCYSTEINE
  7. HERBALS\PLANTAGO OVATA LEAF [Concomitant]
     Active Substance: HERBALS\PLANTAGO OVATA LEAF
  8. CALCIUM CARBONATE\VITAMIN D [Concomitant]
     Active Substance: CALCIUM CARBONATE\VITAMIN D
  9. MAGNESIUM [Concomitant]
     Active Substance: MAGNESIUM
  10. PROBIOTIC 10 BILLION DAILY MAINTENANCE [Concomitant]
  11. ALLEGRA ALLERGY [Concomitant]
     Active Substance: FEXOFENADINE HYDROCHLORIDE
  12. OMEPRAZOLE [Concomitant]
     Active Substance: OMEPRAZOLE

REACTIONS (6)
  - Bruxism [Recovering/Resolving]
  - Facial pain [Recovering/Resolving]
  - Pain in jaw [Recovering/Resolving]
  - Speech disorder [Recovering/Resolving]
  - Eating disorder [Recovering/Resolving]
  - Muscle spasms [Recovering/Resolving]

NARRATIVE: CASE EVENT DATE: 20220101
